FAERS Safety Report 8086637 (Version 5)
Quarter: 2014Q1

REPORT INFORMATION
  Report Type: Spontaneous
  Country: US (occurrence: US)
  Receive Date: 20110811
  Receipt Date: 20140110
  Transmission Date: 20141002
  Serious: Yes (Hospitalization)
  Sender: FDA-Public Use
  Company Number: US-GLAXOSMITHKLINE-A0913457A

PATIENT
  Age: 61 Year
  Sex: Male

DRUGS (1)
  1. AVANDIA [Suspect]
     Indication: DIABETES MELLITUS
     Route: 048
     Dates: start: 2002, end: 200812

REACTIONS (3)
  - Cerebrovascular accident [Unknown]
  - Cardiovascular disorder [Unknown]
  - Cardiac disorder [Unknown]
